FAERS Safety Report 10689938 (Version 2)
Quarter: 2015Q1

REPORT INFORMATION
  Report Type: Spontaneous
  Country: US (occurrence: US)
  Receive Date: 20150105
  Receipt Date: 20150203
  Transmission Date: 20150720
  Serious: Yes (Life-Threatening, Other)
  Sender: FDA-Public Use
  Company Number: US-UCBSA-2014023384

PATIENT
  Sex: Female
  Weight: 73 kg

DRUGS (4)
  1. KEPPRA [Suspect]
     Active Substance: LEVETIRACETAM
     Indication: SEIZURE
     Dosage: 1000 MG, 2X/DAY (BID)
     Route: 048
  2. ATORVASTATIN [Concomitant]
     Active Substance: ATORVASTATIN
     Indication: DYSLIPIDAEMIA
     Dosage: 40 MG, ONCE DAILY (QD)
     Route: 048
  3. TOPAMATE [Concomitant]
     Indication: SEIZURE
     Dosage: 50 MG, ONCE DAILY (QD), ABOUT 5 YEARS
     Route: 048
  4. LAMOTRIGINE. [Concomitant]
     Active Substance: LAMOTRIGINE
     Indication: SEIZURE
     Dosage: 100 MG, ONCE DAILY (QD), ABOUT 4 YEARS
     Route: 048

REACTIONS (2)
  - Arteriovenous malformation [Unknown]
  - Intracranial aneurysm [Not Recovered/Not Resolved]

NARRATIVE: CASE EVENT DATE: 2013
